FAERS Safety Report 12686879 (Version 2)
Quarter: 2016Q3

REPORT INFORMATION
  Report Type: Spontaneous
  Country: US (occurrence: US)
  Receive Date: 20160825
  Receipt Date: 20160912
  Transmission Date: 20161109
  Serious: No
  Sender: FDA-Public Use
  Company Number: US-JAZZ-2016-US-006866

PATIENT
  Sex: Female

DRUGS (39)
  1. ONDANSETRON [Concomitant]
     Active Substance: ONDANSETRON
  2. VITAMIN B6 [Concomitant]
     Active Substance: PYRIDOXINE HYDROCHLORIDE
  3. ASPIRIN. [Concomitant]
     Active Substance: ASPIRIN
  4. LOPRESSOR [Concomitant]
     Active Substance: METOPROLOL TARTRATE
  5. PROTONIX [Concomitant]
     Active Substance: PANTOPRAZOLE SODIUM
  6. TYLENOL EXTRA STRENGTH [Concomitant]
     Active Substance: ACETAMINOPHEN
  7. VISTARIL [Concomitant]
     Active Substance: HYDROXYZINE PAMOATE
  8. XYREM [Suspect]
     Active Substance: SODIUM OXYBATE
     Indication: NARCOLEPSY
     Dosage: 2.25 G, BID
     Route: 048
     Dates: start: 200510, end: 200511
  9. XYREM [Suspect]
     Active Substance: SODIUM OXYBATE
     Dosage: DOSE ADJUSTMENTS
     Route: 048
  10. TYLENOL WITH CODEINE [Concomitant]
     Active Substance: ACETAMINOPHEN\CODEINE PHOSPHATE
  11. 5-HTP [Concomitant]
     Active Substance: OXITRIPTAN
  12. MOTRIN [Concomitant]
     Active Substance: IBUPROFEN
  13. ATIVAN [Concomitant]
     Active Substance: LORAZEPAM
  14. CYANOCOBALAMIN. [Concomitant]
     Active Substance: CYANOCOBALAMIN
  15. TRYPTOPHAN [Concomitant]
     Active Substance: TRYPTOPHAN
  16. NYSTATIN. [Concomitant]
     Active Substance: NYSTATIN
  17. TRAZODONE HYDROCHLORIDE. [Concomitant]
     Active Substance: TRAZODONE HYDROCHLORIDE
  18. PROGESTERONE W/ESTROGENS [Concomitant]
  19. OXYCODONE AND ACETAMINOPHEN [Concomitant]
     Active Substance: ACETAMINOPHEN\OXYCODONE HYDROCHLORIDE
  20. INDERAL [Concomitant]
     Active Substance: PROPRANOLOL HYDROCHLORIDE
  21. PHENOBARBITAL. [Concomitant]
     Active Substance: PHENOBARBITAL
  22. XYLOCAINE [Concomitant]
     Active Substance: LIDOCAINE HYDROCHLORIDE
  23. CIPRO [Concomitant]
     Active Substance: CIPROFLOXACIN HYDROCHLORIDE
  24. PREDNISONE. [Concomitant]
     Active Substance: PREDNISONE
  25. TAURINE [Concomitant]
     Active Substance: TAURINE
  26. XYREM [Suspect]
     Active Substance: SODIUM OXYBATE
     Dosage: 4.5 G, BID
     Route: 048
     Dates: start: 200709
  27. VITAMIN C [Concomitant]
     Active Substance: ASCORBIC ACID
  28. PRILOSEC [Concomitant]
     Active Substance: OMEPRAZOLE MAGNESIUM
  29. PYRIDOXINE HYDROCHLORIDE. [Concomitant]
     Active Substance: PYRIDOXINE HYDROCHLORIDE
  30. PREMARIN [Concomitant]
     Active Substance: ESTROGENS, CONJUGATED
  31. PEPCID [Concomitant]
     Active Substance: FAMOTIDINE
  32. PAXIL [Concomitant]
     Active Substance: PAROXETINE HYDROCHLORIDE
  33. WHEY PROTEIN [Concomitant]
  34. PROBIOTIC [Concomitant]
     Active Substance: PROBIOTICS NOS
  35. PROPRANOLOL [Concomitant]
     Active Substance: PROPRANOLOL\PROPRANOLOL HYDROCHLORIDE
  36. UNASYN [Concomitant]
     Active Substance: AMPICILLIN SODIUM\SULBACTAM SODIUM
  37. GABAPENTIN. [Concomitant]
     Active Substance: GABAPENTIN
  38. AMINOACETIC ACID [Concomitant]
     Active Substance: GLYCINE
  39. PROZAC [Concomitant]
     Active Substance: FLUOXETINE HYDROCHLORIDE

REACTIONS (4)
  - Dyspnoea [Not Recovered/Not Resolved]
  - Oropharyngeal pain [Not Recovered/Not Resolved]
  - Laryngitis viral [Not Recovered/Not Resolved]
  - Rhinorrhoea [Not Recovered/Not Resolved]
